FAERS Safety Report 4575000-1 (Version None)
Quarter: 2005Q1

REPORT INFORMATION
  Report Type: 
  Country: None (occurrence: None)
  Receive Date: 20050208
  Receipt Date: 20050108
  Transmission Date: 20050727
  Serious: Yes (Hospitalization)
  Sender: FDA-Public Use
  Company Number: US-ROCHE-391804

PATIENT
  Age: 53 Year
  Sex: Male
  Weight: 87.3 kg

DRUGS (6)
  1. PEG-INTERFERON ALFA 2A (RO 25-8310) [Suspect]
     Route: 058
     Dates: start: 20041026, end: 20041227
  2. PEG-INTERFERON ALFA 2A (RO 25-8310) [Suspect]
     Route: 058
     Dates: start: 20041227, end: 20050118
  3. PEG-INTERFERON ALFA 2A (RO 25-8310) [Suspect]
     Route: 058
     Dates: start: 20050118
  4. BLINDED VIRAMIDINE [Suspect]
     Route: 048
     Dates: start: 20041026, end: 20041218
  5. BLINDED VIRAMIDINE [Suspect]
     Route: 048
     Dates: start: 20041220, end: 20041224
  6. BLINDED VIRAMIDINE [Suspect]
     Route: 048
     Dates: start: 20041227

REACTIONS (10)
  - BLOOD BICARBONATE DECREASED [None]
  - BLOOD CHLORIDE INCREASED [None]
  - BLOOD GLUCOSE INCREASED [None]
  - DEHYDRATION [None]
  - GIARDIASIS [None]
  - HEPATIC ENZYME ABNORMAL [None]
  - HYPERNATRAEMIA [None]
  - HYPOKALAEMIA [None]
  - PANCREATIC ENZYMES ABNORMAL [None]
  - URINARY TRACT INFECTION [None]
